FAERS Safety Report 9445050 (Version 1)
Quarter: 2013Q3

REPORT INFORMATION
  Report Type: Report from Study
  Country: US (occurrence: US)
  Receive Date: 20130807
  Receipt Date: 20130807
  Transmission Date: 20140515
  Serious: Yes (Hospitalization)
  Sender: FDA-Public Use
  Company Number: US-MYLANLABS-2013S1016803

PATIENT
  Age: 64 Year
  Sex: Female

DRUGS (5)
  1. KETAMINE [Suspect]
     Dosage: 0.5 MG/KG INFUSED OVER 40 MINUTES
     Route: 041
  2. FLUVOXAMINE [Interacting]
     Route: 065
  3. RILUZOLE [Interacting]
     Route: 065
  4. ACETYLCYSTEINE [Interacting]
     Route: 065
  5. ALPRAZOLAM [Interacting]
     Route: 065

REACTIONS (7)
  - Suicidal ideation [Recovered/Resolved]
  - Dysphoria [Recovered/Resolved]
  - Anxiety [Recovered/Resolved]
  - Depersonalisation [Unknown]
  - Paraesthesia [Unknown]
  - Nausea [Unknown]
  - Drug interaction [Recovered/Resolved]
